FAERS Safety Report 5936801-8 (Version None)
Quarter: 2008Q4

REPORT INFORMATION
  Report Type: 
  Country: None (occurrence: None)
  Receive Date: 20081029
  Receipt Date: 20081015
  Transmission Date: 20090506
  Serious: Yes (Death, Hospitalization)
  Sender: FDA-Public Use
  Company Number: 430015M08USA

PATIENT
  Age: 52 Year
  Sex: Female

DRUGS (3)
  1. NOVANTRONE [Suspect]
     Indication: MULTIPLE SCLEROSIS
     Dates: start: 20080703, end: 20080708
  2. ETOPOSIDE [Suspect]
     Dates: start: 20080703, end: 20080708
  3. SPRYCEL [Suspect]
     Indication: ACUTE MYELOID LEUKAEMIA
     Dosage: 50 MG, 2 IN 1 DAYS

REACTIONS (7)
  - ABDOMINAL DISCOMFORT [None]
  - CARDIAC ARREST [None]
  - COLITIS [None]
  - ELECTROMECHANICAL DISSOCIATION [None]
  - HYPOTENSION [None]
  - KLEBSIELLA BACTERAEMIA [None]
  - SEPSIS [None]
